FAERS Safety Report 24792287 (Version 4)
Quarter: 2025Q2

REPORT INFORMATION
  Report Type: Report from Study
  Country: US (occurrence: US)
  Receive Date: 20241231
  Receipt Date: 20250630
  Transmission Date: 20250716
  Serious: Yes (Hospitalization, Other)
  Sender: TAKEDA
  Company Number: US-TAKEDA-2023TUS050532

PATIENT
  Sex: Female
  Weight: 69 kg

DRUGS (19)
  1. HUMAN IMMUNOGLOBULIN G [Suspect]
     Active Substance: HUMAN IMMUNOGLOBULIN G
     Indication: Congenital hypogammaglobulinaemia
     Dosage: 35 MILLIGRAM, Q4WEEKS
     Dates: start: 20230306
  2. HUMAN IMMUNOGLOBULIN G [Suspect]
     Active Substance: HUMAN IMMUNOGLOBULIN G
     Dosage: 35 GRAM, Q4WEEKS
  3. DIPHENHYDRAMINE HYDROCHLORIDE [Concomitant]
     Active Substance: DIPHENHYDRAMINE HYDROCHLORIDE
  4. SULFASALAZINE [Concomitant]
     Active Substance: SULFASALAZINE
  5. IBU [Concomitant]
     Active Substance: IBUPROFEN
  6. EPINEPHRINE [Concomitant]
     Active Substance: EPINEPHRINE
  7. SODIUM CHLORIDE [Concomitant]
     Active Substance: SODIUM CHLORIDE
  8. CELEBREX [Concomitant]
     Active Substance: CELECOXIB
  9. REMICADE [Concomitant]
     Active Substance: INFLIXIMAB
  10. ACETAMINOPHEN [Concomitant]
     Active Substance: ACETAMINOPHEN
  11. ZYRTEC [Concomitant]
     Active Substance: CETIRIZINE HYDROCHLORIDE
  12. DEXTROSE [Concomitant]
     Active Substance: DEXTROSE MONOHYDRATE
  13. Lmx [Concomitant]
  14. HYOSCYAMINE SULFATE [Concomitant]
     Active Substance: HYOSCYAMINE SULFATE
  15. ASPIRIN [Concomitant]
     Active Substance: ASPIRIN
  16. BETAMETHASONE [Concomitant]
     Active Substance: BETAMETHASONE
  17. BETAMETHASONE DIPROPIONATE AUGMENTED [Concomitant]
     Active Substance: BETAMETHASONE DIPROPIONATE
  18. NALTREXONE [Concomitant]
     Active Substance: NALTREXONE
  19. ELIQUIS [Concomitant]
     Active Substance: APIXABAN

REACTIONS (19)
  - Cardiomyopathy [Unknown]
  - Neuropathy peripheral [Unknown]
  - Nephrolithiasis [Unknown]
  - Atrial fibrillation [Unknown]
  - Seasonal allergy [Unknown]
  - Discomfort [Unknown]
  - Stress [Unknown]
  - Herpes zoster [Unknown]
  - Arthropod bite [Unknown]
  - Fungal infection [Unknown]
  - Photosensitivity reaction [Unknown]
  - Lymphadenopathy [Unknown]
  - Asthenia [Unknown]
  - Hypertension [Unknown]
  - Rash [Unknown]
  - Pain [Unknown]
  - Arthralgia [Unknown]
  - Pain in extremity [Unknown]
  - Infusion site pain [Unknown]
